FAERS Safety Report 25362406 (Version 6)
Quarter: 2025Q4

REPORT INFORMATION
  Report Type: Spontaneous
  Country: PA (occurrence: PA)
  Receive Date: 20250527
  Receipt Date: 20251204
  Transmission Date: 20260118
  Serious: Yes (Other)
  Sender: SANDOZ
  Company Number: PA-002147023-NVSC2025PA083828

PATIENT
  Age: 53 Year
  Sex: Female

DRUGS (4)
  1. FULVESTRANT [Suspect]
     Active Substance: FULVESTRANT
     Indication: Product used for unknown indication
     Dosage: UNK
     Route: 065
  2. KISQALI [Suspect]
     Active Substance: RIBOCICLIB SUCCINATE
     Dosage: 2 DOSAGE FORM, QD (400 MG)
     Route: 048
  3. KISQALI [Suspect]
     Active Substance: RIBOCICLIB SUCCINATE
     Indication: Breast cancer metastatic
     Dosage: 600 MG, QD
     Route: 048
     Dates: start: 202502
  4. KISQALI [Suspect]
     Active Substance: RIBOCICLIB SUCCINATE
     Dosage: 600 MG, QD
     Route: 048
     Dates: start: 202503, end: 202508

REACTIONS (12)
  - Metastases to lung [Unknown]
  - Metastases to nervous system [Unknown]
  - Inflammation [Unknown]
  - Skin burning sensation [Not Recovered/Not Resolved]
  - Skin irritation [Unknown]
  - Injury [Unknown]
  - Drug intolerance [Unknown]
  - Pigmentation disorder [Unknown]
  - Skin discolouration [Unknown]
  - Pruritus [Recovering/Resolving]
  - Hypersensitivity [Unknown]
  - Product availability issue [Unknown]

NARRATIVE: CASE EVENT DATE: 20250301
